FAERS Safety Report 14448421 (Version 4)
Quarter: 2018Q1

REPORT INFORMATION
  Report Type: Report from Study
  Country: US (occurrence: US)
  Receive Date: 20180126
  Receipt Date: 20180222
  Transmission Date: 20180509
  Serious: Yes (Hospitalization)
  Sender: FDA-Public Use
  Company Number: US-PFIZER INC-2018022963

PATIENT
  Age: 42 Year
  Sex: Female
  Weight: 69.5 kg

DRUGS (12)
  1. GABAPENTIN. [Concomitant]
     Active Substance: GABAPENTIN
     Indication: FIBROMYALGIA
     Dosage: 600 MG, 3X/DAY
     Route: 048
     Dates: start: 20161221
  2. PRILOSEC [Concomitant]
     Active Substance: OMEPRAZOLE MAGNESIUM
     Indication: GASTROOESOPHAGEAL REFLUX DISEASE
     Dosage: 20 MG, DAILY
     Route: 048
     Dates: start: 20170920
  3. ES ACETAMINOPHEN [Concomitant]
     Indication: DISCOMFORT
     Dosage: 2 TABS, AS NEEDED
     Route: 048
     Dates: start: 199501
  4. FOLIC ACID. [Concomitant]
     Active Substance: FOLIC ACID
     Indication: RHEUMATOID ARTHRITIS
     Dosage: 1 MG, DAILY
     Route: 048
     Dates: start: 201608
  5. TRAMADOL. [Concomitant]
     Active Substance: TRAMADOL
     Indication: DISCOMFORT
     Dosage: 50 MG, AS NEEDED
     Route: 048
     Dates: start: 200801
  6. ALEVE [Concomitant]
     Active Substance: NAPROXEN SODIUM
     Indication: PAIN
     Dosage: 2 DF, AS NEEDED
     Route: 048
     Dates: start: 20170727
  7. CALCIUM/VITAMIN D /01204201/ [Concomitant]
     Active Substance: CALCIUM CARBONATE\ERGOCALCIFEROL
     Indication: SUPPLEMENTATION THERAPY
     Dosage: [CALCIUM CARBONATE 600 MG][ERGOCALCIFEROL 500 IU], DAILY
     Route: 048
     Dates: start: 201606
  8. TOFACITINIB CITRATE [Suspect]
     Active Substance: TOFACITINIB CITRATE
     Indication: RHEUMATOID ARTHRITIS
     Dosage: 11 MG, DAILY
     Route: 048
     Dates: start: 20171025, end: 20171210
  9. PREDNISONE. [Concomitant]
     Active Substance: PREDNISONE
     Indication: RHEUMATOID ARTHRITIS
     Dosage: 5MG, 2.5 MG, 2X/DAY
     Route: 048
     Dates: start: 20170817
  10. VITAMIN B12 [Concomitant]
     Active Substance: CYANOCOBALAMIN
     Indication: PROPHYLAXIS
     Dosage: 500 UG, DAILY
     Route: 048
     Dates: start: 20170901
  11. METHOTREXATE SODIUM. [Suspect]
     Active Substance: METHOTREXATE SODIUM
     Indication: RHEUMATOID ARTHRITIS
     Dosage: 15 MG, WEEKLY
     Route: 048
     Dates: start: 20171026, end: 20171210
  12. HYDROCODONE/PARACETAMOL [Concomitant]
     Indication: DISCOMFORT
     Dosage: HYDROCODONE 5MG]/[PARACETAMOL 325 MG], Q4H, AS NEEDED
     Route: 048
     Dates: start: 200801

REACTIONS (1)
  - Volvulus of small bowel [Recovered/Resolved]

NARRATIVE: CASE EVENT DATE: 20171209
